FAERS Safety Report 10715061 (Version 1)
Quarter: 2015Q1

REPORT INFORMATION
  Report Type: Spontaneous
  Country: US (occurrence: US)
  Receive Date: 20150115
  Receipt Date: 20150115
  Transmission Date: 20150721
  Serious: Yes (Other)
  Sender: FDA-Public Use
  Company Number: US-GLAXOSMITHKLINE-US2015001198

PATIENT
  Sex: Female

DRUGS (4)
  1. ADVAIR DISKUS [Suspect]
     Active Substance: FLUTICASONE PROPIONATE\SALMETEROL XINAFOATE
     Indication: ASTHMA
     Dosage: 1 PUFF(S), BID
     Route: 055
  2. PROAIR HFA [Concomitant]
     Active Substance: ALBUTEROL SULFATE
  3. FLUTICASONE PROPIONATE. [Suspect]
     Active Substance: FLUTICASONE PROPIONATE
     Indication: EAR INFECTION
  4. NASACORT [Concomitant]
     Active Substance: TRIAMCINOLONE ACETONIDE

REACTIONS (10)
  - Tinnitus [Unknown]
  - Ear infection [Recovering/Resolving]
  - Pyrexia [Not Recovered/Not Resolved]
  - Dysphonia [Recovering/Resolving]
  - Asthma [Recovered/Resolved]
  - Hypoacusis [Recovered/Resolved]
  - Lower respiratory tract infection [Recovering/Resolving]
  - Rhinitis [Recovering/Resolving]
  - Drug ineffective [Unknown]
  - Deafness unilateral [Recovered/Resolved with Sequelae]
